FAERS Safety Report 13281279 (Version 1)
Quarter: 2017Q1

REPORT INFORMATION
  Report Type: Spontaneous
  Country: US (occurrence: US)
  Receive Date: 20170228
  Receipt Date: 20170228
  Transmission Date: 20170428
  Serious: Yes (Life-Threatening, Other)
  Sender: FDA-Public Use
  Company Number: None

PATIENT
  Age: 73 Year
  Sex: Male
  Weight: 90 kg

DRUGS (6)
  1. MUSCLE RELAXER [Concomitant]
     Active Substance: UNSPECIFIED INGREDIENT
  2. MOVANTIK [Suspect]
     Active Substance: NALOXEGOL OXALATE
     Indication: CONSTIPATION
     Dosage: ?          QUANTITY:3 TABLET(S);?
     Route: 048
     Dates: start: 20170224, end: 20170228
  3. HIGH BLOOD PRESSURE MEDICATION [Concomitant]
     Active Substance: UNSPECIFIED INGREDIENT
  4. SLEEP MEDICATION [Concomitant]
     Active Substance: UNSPECIFIED INGREDIENT
  5. ASPIRIN. [Concomitant]
     Active Substance: ASPIRIN
  6. PAIN MEDICATION [Concomitant]
     Active Substance: UNSPECIFIED INGREDIENT

REACTIONS (1)
  - Suicidal behaviour [None]

NARRATIVE: CASE EVENT DATE: 20170228
